FAERS Safety Report 18055601 (Version 1)
Quarter: 2020Q3

REPORT INFORMATION
  Report Type: Spontaneous
  Country: AT (occurrence: AT)
  Receive Date: 20200722
  Receipt Date: 20200722
  Transmission Date: 20201103
  Serious: Yes (Other)
  Sender: FDA-Public Use
  Company Number: AT-GLAXOSMITHKLINE-AT2020137761

PATIENT
  Sex: Male
  Weight: 1.3 kg

DRUGS (4)
  1. GANCICLOVIR. [Concomitant]
     Active Substance: GANCICLOVIR
     Indication: CYTOMEGALOVIRUS INFECTION
     Dosage: 12 MG/KG, QD (FOR A TOTAL OF TWO WEEKS)
     Route: 051
  2. VALGANCICLOVIR. [Suspect]
     Active Substance: VALGANCICLOVIR
     Indication: CYTOMEGALOVIRUS INFECTION
     Dosage: UNK(FOR SIX WEEKS)
     Route: 048
  3. VALACICLOVIR [Suspect]
     Active Substance: VALACYCLOVIR HYDROCHLORIDE
     Indication: CYTOMEGALOVIRUS INFECTION
     Dosage: 8 G, QD
     Route: 064
  4. VALGANCICLOVIR. [Suspect]
     Active Substance: VALGANCICLOVIR
     Dosage: 32 MG/KG (DUE TO NEUTROPENIA THE DOSE WAS HALVED, AND THE DURATION OF THERAPY WAS EXTENDED TO A TOTA
     Route: 048

REACTIONS (4)
  - Neutropenia [Unknown]
  - Intentional product use issue [Unknown]
  - Off label use [Unknown]
  - Foetal exposure during pregnancy [Unknown]
